FAERS Safety Report 21294346 (Version 1)
Quarter: 2022Q3

REPORT INFORMATION
  Report Type: Spontaneous
  Country: US (occurrence: US)
  Receive Date: 20220905
  Receipt Date: 20220905
  Transmission Date: 20221027
  Serious: Yes (Other)
  Sender: FDA-Public Use
  Company Number: US-TEVA-2022-US-2069050

PATIENT
  Age: 53 Year
  Sex: Female

DRUGS (1)
  1. CINQAIR [Suspect]
     Active Substance: RESLIZUMAB
     Indication: Asthma
     Dosage: STRENGTH: 10 MG/ML
     Route: 042
     Dates: start: 20211007

REACTIONS (2)
  - Respiratory distress [Unknown]
  - Drug ineffective [Unknown]
